FAERS Safety Report 4825712-7 (Version None)
Quarter: 2005Q4

REPORT INFORMATION
  Report Type: 
  Country: None (occurrence: None)
  Receive Date: 20051111
  Receipt Date: 20051006
  Transmission Date: 20060501
  Serious: Yes (Hospitalization)
  Sender: FDA-Public Use
  Company Number: PHEH2005US11198

PATIENT
  Sex: Female

DRUGS (3)
  1. SYNTHROID [Suspect]
     Indication: THYROID DISORDER
     Dosage: 25 MG, UNK
     Dates: start: 20050301
  2. LOTREL [Suspect]
     Indication: HYPERTENSION
     Dosage: 5/20MG UNK
     Route: 048
     Dates: start: 20050101
  3. LOTREL [Suspect]
     Dosage: 5/20MG, UNK
     Route: 048
     Dates: start: 20050301

REACTIONS (2)
  - OEDEMA PERIPHERAL [None]
  - SYNCOPE [None]
